FAERS Safety Report 18216512 (Version 4)
Quarter: 2021Q4

REPORT INFORMATION
  Report Type: Spontaneous
  Country: SE (occurrence: SE)
  Receive Date: 20200901
  Receipt Date: 20211222
  Transmission Date: 20220304
  Serious: Yes (Other)
  Sender: FDA-Public Use
  Company Number: SE-BAYER-2020-176097

PATIENT

DRUGS (3)
  1. EYLEA [Suspect]
     Active Substance: AFLIBERCEPT
     Indication: Neovascular age-related macular degeneration
     Dosage: BILATERAL INJECTIONS WITH DIFFERENT BATCHES.
  2. EYLEA [Suspect]
     Active Substance: AFLIBERCEPT
     Dosage: INJECTION IN RIGHT EYE, 13TH INJECTION
     Route: 031
     Dates: start: 20200812, end: 20200812
  3. EYLEA [Suspect]
     Active Substance: AFLIBERCEPT
     Dosage: INJECTION IN LEFT, 13TH INJECTION
     Route: 031
     Dates: start: 20200812, end: 20200812

REACTIONS (5)
  - Blindness [Not Recovered/Not Resolved]
  - Endophthalmitis [Recovered/Resolved with Sequelae]
  - Staphylococcus test positive [Recovered/Resolved with Sequelae]
  - Paracentesis eye abnormal [Recovered/Resolved with Sequelae]
  - Eye pain [Recovered/Resolved with Sequelae]

NARRATIVE: CASE EVENT DATE: 20200814
